FAERS Safety Report 6238780-5 (Version None)
Quarter: 2009Q2

REPORT INFORMATION
  Report Type: 
  Country: None (occurrence: None)
  Receive Date: 20090618
  Receipt Date: 20090608
  Transmission Date: 20091009
  Serious: Yes (Other)
  Sender: FDA-Public Use
  Company Number: 2009AP002294

PATIENT
  Age: 68 Year
  Sex: Female

DRUGS (6)
  1. METFORMIN HCL [Suspect]
  2. GLYBURIDE [Concomitant]
  3. LERCANIDIPINE [Concomitant]
  4. TELMISARTAN [Concomitant]
  5. HYDROCHLOROTHIAZIDE [Concomitant]
  6. INSULIN GLARGINE (INSULIN GLARGINE) [Concomitant]

REACTIONS (3)
  - DIALYSIS [None]
  - LACTIC ACIDOSIS [None]
  - RENAL FAILURE ACUTE [None]
